FAERS Safety Report 9175038 (Version 4)
Quarter: 2016Q2

REPORT INFORMATION
  Report Type: Spontaneous
  Country: US (occurrence: US)
  Receive Date: 20130320
  Receipt Date: 20160504
  Transmission Date: 20160815
  Serious: Yes (Hospitalization)
  Sender: FDA-Public Use
  Company Number: US-009507513-1303USA007567

PATIENT
  Sex: Male
  Weight: 77.98 kg

DRUGS (1)
  1. PROPECIA [Suspect]
     Active Substance: FINASTERIDE
     Indication: ANDROGENETIC ALOPECIA
     Dosage: 1 MG, QD
     Route: 048
     Dates: start: 20040901, end: 201112

REACTIONS (15)
  - Cognitive disorder [Not Recovered/Not Resolved]
  - Genital hypoaesthesia [Unknown]
  - Tooth fracture [Unknown]
  - Gynaecomastia [Not Recovered/Not Resolved]
  - Ear operation [Unknown]
  - Loose tooth [Unknown]
  - Road traffic accident [Unknown]
  - Semen volume decreased [Unknown]
  - Skin abrasion [Unknown]
  - Male orgasmic disorder [Unknown]
  - Sexual dysfunction [Not Recovered/Not Resolved]
  - Ejaculation disorder [Unknown]
  - Hydrocele [Unknown]
  - Erectile dysfunction [Unknown]
  - Libido decreased [Unknown]

NARRATIVE: CASE EVENT DATE: 200908
